FAERS Safety Report 21982394 (Version 1)
Quarter: 2023Q1

REPORT INFORMATION
  Report Type: Report from Study
  Country: CN (occurrence: CN)
  Receive Date: 20230213
  Receipt Date: 20230213
  Transmission Date: 20230417
  Serious: Yes (Other)
  Sender: FDA-Public Use
  Company Number: CN-SUN PHARMACEUTICAL INDUSTRIES LTD-2023R1-377093

PATIENT
  Age: 57 Year
  Sex: Female

DRUGS (3)
  1. AFATINIB [Suspect]
     Active Substance: AFATINIB
     Indication: Chemotherapy
     Dosage: UNK
     Route: 065
  2. CARBOPLATIN [Suspect]
     Active Substance: CARBOPLATIN
     Indication: Chemotherapy
     Dosage: UNK
     Route: 065
  3. PACLITAXEL [Suspect]
     Active Substance: PACLITAXEL
     Indication: Chemotherapy
     Dosage: UNK
     Route: 065

REACTIONS (1)
  - Therapy partial responder [Unknown]
